FAERS Safety Report 5852401-2 (Version None)
Quarter: 2008Q3

REPORT INFORMATION
  Report Type: 
  Country: None (occurrence: None)
  Receive Date: 20080820
  Receipt Date: 20080820
  Transmission Date: 20090109
  Serious: Yes (Hospitalization, Other)
  Sender: FDA-Public Use
  Company Number: None

PATIENT
  Sex: Female
  Weight: 45.8133 kg

DRUGS (2)
  1. ZONISAMIDE [Suspect]
     Indication: CEREBROVASCULAR ACCIDENT
     Dosage: 2 CAPSULES DAILY AT BEDTIME
     Dates: start: 20080716, end: 20080718
  2. ZONISAMIDE [Suspect]
     Indication: CONVULSION
     Dosage: 2 CAPSULES DAILY AT BEDTIME
     Dates: start: 20080716, end: 20080718

REACTIONS (1)
  - CONVULSION [None]
